FAERS Safety Report 9357385 (Version 1)
Quarter: 2013Q2

REPORT INFORMATION
  Report Type: Spontaneous
  Country: FR (occurrence: FR)
  Receive Date: 20130620
  Receipt Date: 20130620
  Transmission Date: 20140414
  Serious: Yes (Other)
  Sender: FDA-Public Use
  Company Number: FR-UCBSA-089343

PATIENT
  Age: 57 Year
  Sex: Male

DRUGS (2)
  1. VIMPAT [Suspect]
     Route: 048
     Dates: start: 2012
  2. VIMPAT [Suspect]
     Dosage: 150 MG TABLETS ( 3 TABLET IN THE MORNING AND 3 TABLETS IN THE EVENING)
     Route: 048
     Dates: start: 20130322, end: 20130322

REACTIONS (4)
  - Somnolence [Recovered/Resolved]
  - Depressed level of consciousness [Recovered/Resolved]
  - Incorrect dose administered [Recovered/Resolved]
  - Overdose [Unknown]
